FAERS Safety Report 4660624-3 (Version None)
Quarter: 2005Q2

REPORT INFORMATION
  Report Type: 
  Country: None (occurrence: None)
  Receive Date: 20050425
  Receipt Date: 20050104
  Transmission Date: 20051028
  Serious: No
  Sender: FDA-Public Use
  Company Number: US105889

PATIENT
  Age: 42 Year
  Sex: Male
  Weight: 67 kg

DRUGS (13)
  1. SENSIPAR [Suspect]
     Indication: HYPERPARATHYROIDISM SECONDARY
     Dosage: 30 MG, 1 IN 1 DAYS,PO
     Route: 048
     Dates: start: 20040601, end: 20041231
  2. AMLODIPINE [Concomitant]
  3. BUPROPION [Concomitant]
  4. NEPHRO-VITE [Concomitant]
  5. ZOLPIDEM TARTRATE [Concomitant]
  6. PREDNISONE [Concomitant]
  7. HYDROCODONE [Concomitant]
  8. TUMS [Concomitant]
  9. COLCHICINE [Concomitant]
  10. PROMETHAZINE HCL [Concomitant]
  11. FAMOTIDINE [Concomitant]
  12. DILTIAZEM HYDROCHLORIDE [Concomitant]
  13. CLONAZEPAM [Concomitant]

REACTIONS (1)
  - BLOOD CREATINE PHOSPHOKINASE INCREASED [None]
